FAERS Safety Report 15290734 (Version 1)
Quarter: 2018Q3

REPORT INFORMATION
  Report Type: Spontaneous
  Country: US (occurrence: US)
  Receive Date: 20180817
  Receipt Date: 20180817
  Transmission Date: 20181010
  Serious: Yes (Hospitalization)
  Sender: FDA-Public Use
  Company Number: US-BAYER-2018-149816

PATIENT
  Sex: Male

DRUGS (1)
  1. COPPERTONE SPORT SPF 30 SPRAY [Suspect]
     Active Substance: AVOBENZONE\HOMOSALATE\OCTISALATE\OCTOCRYLENE\OXYBENZONE
     Indication: THERAPEUTIC SKIN CARE TOPICAL
     Dosage: UNK
     Route: 061
     Dates: start: 20180714

REACTIONS (4)
  - Sunburn [Unknown]
  - Blister [Unknown]
  - Skin discolouration [None]
  - Pain [None]

NARRATIVE: CASE EVENT DATE: 201807
